FAERS Safety Report 10026070 (Version 1)
Quarter: 2014Q1

REPORT INFORMATION
  Report Type: Report from Study
  Country: IT (occurrence: IT)
  Receive Date: 20140320
  Receipt Date: 20140320
  Transmission Date: 20141002
  Serious: Yes (Hospitalization, Other)
  Sender: FDA-Public Use
  Company Number: IT-GILEAD-2014-0096743

PATIENT
  Age: 64 Year
  Sex: Male

DRUGS (9)
  1. SOFOSBUVIR [Suspect]
     Indication: HEPATITIS C
     Dosage: 400 MG, QD
     Route: 048
     Dates: start: 20131211
  2. RIBAVIRIN [Suspect]
     Indication: HEPATITIS C
     Dosage: 200 MG, QD
     Route: 048
     Dates: start: 20131211, end: 20140311
  3. TACROLIMUS [Concomitant]
     Dosage: UNK
  4. MYCOPHENOLATE MOFETIL [Concomitant]
     Dosage: UNK
  5. FUROSEMIDE [Concomitant]
     Dosage: UNK
  6. PROPANOLOL                         /00030001/ [Concomitant]
     Dosage: UNK
  7. POTASSIUM CANRENOATE [Concomitant]
     Dosage: UNK
  8. RIFAXIMIN [Concomitant]
     Dosage: UNK
  9. LACTULOSE [Concomitant]
     Dosage: UNK

REACTIONS (2)
  - Hepatic encephalopathy [Recovered/Resolved]
  - Ascites [Recovered/Resolved]
